FAERS Safety Report 10900629 (Version 1)
Quarter: 2015Q1

REPORT INFORMATION
  Report Type: Spontaneous
  Country: US (occurrence: None)
  Receive Date: 20150303
  Receipt Date: 20150303
  Transmission Date: 20150721
  Serious: Yes (Hospitalization)
  Sender: FDA-Public Use
  Company Number: None

PATIENT
  Age: 83 Year
  Sex: Male

DRUGS (15)
  1. ROCALTROL [Concomitant]
     Active Substance: CALCITRIOL
  2. OCUVITE [Concomitant]
     Active Substance: VITAMINS
  3. NORTRIPTYLINE [Concomitant]
     Active Substance: NORTRIPTYLINE
  4. REVLIMID [Suspect]
     Active Substance: LENALIDOMIDE
     Indication: PLASMA CELL MYELOMA
     Route: 048
     Dates: start: 201408
  5. VITAMIN D3 [Concomitant]
     Active Substance: CHOLECALCIFEROL
  6. PROSCAR [Concomitant]
     Active Substance: FINASTERIDE
  7. GLIPIZIDE. [Concomitant]
     Active Substance: GLIPIZIDE
  8. SLO-NIACIN [Concomitant]
     Active Substance: DIETARY SUPPLEMENT
  9. WARFARIN [Concomitant]
     Active Substance: WARFARIN
  10. ATENOLOL. [Concomitant]
     Active Substance: ATENOLOL
  11. LOSARTAN [Concomitant]
     Active Substance: LOSARTAN
  12. DECADRON [Concomitant]
     Active Substance: DEXAMETHASONE
  13. GABAPENTIN. [Concomitant]
     Active Substance: GABAPENTIN
  14. ASA [Concomitant]
     Active Substance: ASPIRIN
  15. OMEPRAZOLE. [Concomitant]
     Active Substance: OMEPRAZOLE

REACTIONS (4)
  - Staphylococcal bacteraemia [None]
  - Wound [None]
  - Chest pain [None]
  - Joint range of motion decreased [None]

NARRATIVE: CASE EVENT DATE: 20141225
